FAERS Safety Report 13273775 (Version 4)
Quarter: 2017Q4

REPORT INFORMATION
  Report Type: Spontaneous
  Country: RU (occurrence: RU)
  Receive Date: 20170227
  Receipt Date: 20171026
  Transmission Date: 20180320
  Serious: Yes (Hospitalization, Other)
  Sender: FDA-Public Use
  Company Number: RU-ALEXION PHARMACEUTICALS INC.-A201608966

PATIENT
  Age: 25 Year
  Sex: Female
  Weight: 77 kg

DRUGS (2)
  1. SOLIRIS [Suspect]
     Active Substance: ECULIZUMAB
     Dosage: 900 MG, Q2W
     Route: 042
     Dates: start: 20151215
  2. SOLIRIS [Suspect]
     Active Substance: ECULIZUMAB
     Indication: PAROXYSMAL NOCTURNAL HAEMOGLOBINURIA
     Dosage: UNK
     Route: 042

REACTIONS (11)
  - Acute abdomen [Unknown]
  - Renal injury [Unknown]
  - Chromaturia [Recovered/Resolved]
  - Dysphagia [Unknown]
  - Intravascular haemolysis [Unknown]
  - Exposure during pregnancy [Recovered/Resolved]
  - Inappropriate schedule of drug administration [Recovered/Resolved]
  - Paroxysmal nocturnal haemoglobinuria [Unknown]
  - Posterior reversible encephalopathy syndrome [Unknown]
  - Pre-eclampsia [Recovered/Resolved]
  - Condition aggravated [Unknown]

NARRATIVE: CASE EVENT DATE: 201607
